FAERS Safety Report 18710179 (Version 2)
Quarter: 2021Q1

REPORT INFORMATION
  Report Type: Spontaneous
  Country: US (occurrence: US)
  Receive Date: 20210107
  Receipt Date: 20210222
  Transmission Date: 20210419
  Serious: No
  Sender: FDA-Public Use
  Company Number: US-SA-2020SA377038

PATIENT
  Age: 57 Year
  Sex: Male

DRUGS (1)
  1. DUPIXENT [Suspect]
     Active Substance: DUPILUMAB
     Dosage: 300 MG, QOW
     Route: 058
     Dates: start: 20201202

REACTIONS (4)
  - Product preparation error [Unknown]
  - Incorrect dose administered [Unknown]
  - Rash [Unknown]
  - Product storage error [Unknown]

NARRATIVE: CASE EVENT DATE: 20210212
